FAERS Safety Report 19045933 (Version 1)
Quarter: 2021Q1

REPORT INFORMATION
  Report Type: Spontaneous
  Country: IN (occurrence: US)
  Receive Date: 20210322
  Receipt Date: 20210322
  Transmission Date: 20210420
  Serious: Yes (Other)
  Sender: FDA-Public Use
  Company Number: US-ELI_LILLY_AND_COMPANY-US202103005518

PATIENT
  Age: 26 Year
  Sex: Male

DRUGS (2)
  1. DOCETAXEL. [Suspect]
     Active Substance: DOCETAXEL
     Indication: ANGIOSARCOMA
     Dosage: 100 MG/M2 ON DAY 8, 3 CYCLES
     Route: 065
  2. GEMCITABINE HYDROCHLORIDE. [Suspect]
     Active Substance: GEMCITABINE HYDROCHLORIDE
     Indication: ANGIOSARCOMA
     Dosage: ON DAYS 1 AND 8, 3 CYCLES
     Route: 065

REACTIONS (2)
  - Dermatitis [Unknown]
  - Off label use [Unknown]
